FAERS Safety Report 17911115 (Version 4)
Quarter: 2022Q2

REPORT INFORMATION
  Report Type: Spontaneous
  Country: US (occurrence: US)
  Receive Date: 20200618
  Receipt Date: 20220401
  Transmission Date: 20220720
  Serious: Yes (Death, Other)
  Sender: FDA-Public Use
  Company Number: US-GILEAD-2020-0473488

PATIENT
  Age: 55 Year
  Sex: Female
  Weight: 106.58 kg

DRUGS (68)
  1. VIREAD [Suspect]
     Active Substance: TENOFOVIR DISOPROXIL FUMARATE
     Indication: HIV infection
     Dosage: UNK
     Route: 048
     Dates: start: 2007, end: 201801
  2. VIREAD [Suspect]
     Active Substance: TENOFOVIR DISOPROXIL FUMARATE
     Dosage: UNK
     Route: 065
     Dates: start: 20081017, end: 200903
  3. VIREAD [Suspect]
     Active Substance: TENOFOVIR DISOPROXIL FUMARATE
     Dosage: UNK
     Route: 065
     Dates: start: 20090409, end: 200911
  4. VIREAD [Suspect]
     Active Substance: TENOFOVIR DISOPROXIL FUMARATE
     Dosage: UNK
     Route: 065
     Dates: start: 20091208, end: 201203
  5. VIREAD [Suspect]
     Active Substance: TENOFOVIR DISOPROXIL FUMARATE
     Dosage: UNK
     Route: 065
     Dates: start: 20120402, end: 201304
  6. VIREAD [Suspect]
     Active Substance: TENOFOVIR DISOPROXIL FUMARATE
     Dosage: UNK
     Route: 065
     Dates: start: 20130429, end: 201401
  7. VIREAD [Suspect]
     Active Substance: TENOFOVIR DISOPROXIL FUMARATE
     Dosage: UNK
     Route: 065
     Dates: start: 20150714, end: 20180307
  8. BIKTARVY [Concomitant]
     Active Substance: BICTEGRAVIR SODIUM\EMTRICITABINE\TENOFOVIR ALAFENAMIDE FUMARATE
  9. TYLENOL [Concomitant]
     Active Substance: ACETAMINOPHEN
  10. AMOXICILLIN [Concomitant]
     Active Substance: AMOXICILLIN
     Dosage: UNK
     Route: 065
     Dates: start: 1997, end: 2020
  11. AMPICILLIN [Concomitant]
     Active Substance: AMPICILLIN
  12. ASPIRIN [Concomitant]
     Active Substance: ASPIRIN
     Dosage: UNK
     Dates: start: 1997, end: 20200711
  13. ATORVASTATIN [Concomitant]
     Active Substance: ATORVASTATIN
  14. BACTRIM [Concomitant]
     Active Substance: SULFAMETHOXAZOLE\TRIMETHOPRIM
     Dosage: UNK
     Route: 065
     Dates: start: 2000, end: 2020
  15. TAGAMET [Concomitant]
     Active Substance: CIMETIDINE
     Dosage: UNK
     Route: 065
     Dates: start: 2000, end: 20200711
  16. CRESTOR [Concomitant]
     Active Substance: ROSUVASTATIN CALCIUM
     Dosage: UNK
     Route: 065
     Dates: start: 2000, end: 20200711
  17. DEPAKOTE [Concomitant]
     Active Substance: DIVALPROEX SODIUM
     Dosage: UNK
     Route: 065
     Dates: start: 2005, end: 20200711
  18. PENICILLIN [Concomitant]
     Active Substance: PENICILLIN
  19. RANITIDINE [Concomitant]
     Active Substance: RANITIDINE
  20. COMBIVIR [Concomitant]
     Active Substance: LAMIVUDINE\ZIDOVUDINE
  21. NORVIR [Concomitant]
     Active Substance: RITONAVIR
     Dosage: UNK
     Route: 065
     Dates: start: 20170203, end: 20191208
  22. PREZISTA [Concomitant]
     Active Substance: DARUNAVIR ETHANOLATE
     Dosage: UNK
     Route: 065
     Dates: start: 20160511, end: 20170302
  23. RETROVIR [Concomitant]
     Active Substance: ZIDOVUDINE
  24. REYATAZ [Concomitant]
     Active Substance: ATAZANAVIR SULFATE
     Dosage: UNK
     Route: 065
     Dates: start: 200912
  25. ZIAGEN [Concomitant]
     Active Substance: ABACAVIR SULFATE
     Dosage: UNK
     Route: 065
     Dates: start: 20141024, end: 20180517
  26. JANUVIA [Concomitant]
     Active Substance: SITAGLIPTIN PHOSPHATE
  27. NEXIUM 24HR [Concomitant]
     Active Substance: ESOMEPRAZOLE MAGNESIUM
     Dosage: UNK
     Route: 065
     Dates: start: 2017, end: 2020
  28. FAMOTIDINE [Concomitant]
     Active Substance: FAMOTIDINE
     Dosage: UNK
     Dates: start: 2000, end: 2020
  29. TRESIBA [Concomitant]
     Active Substance: INSULIN DEGLUDEC
     Dosage: UNK
     Route: 065
     Dates: end: 20200711
  30. LOPRESSOR [Concomitant]
     Active Substance: METOPROLOL TARTRATE
     Dosage: UNK
     Route: 065
     Dates: end: 20200711
  31. AZITHROMYCIN [Concomitant]
     Active Substance: AZITHROMYCIN
  32. DIFLUCAN [Concomitant]
     Active Substance: FLUCONAZOLE
  33. DOVATO [Concomitant]
     Active Substance: DOLUTEGRAVIR SODIUM\LAMIVUDINE
  34. OXYCODONE AND ACETAMINOPHEN [Concomitant]
     Active Substance: ACETAMINOPHEN\OXYCODONE HYDROCHLORIDE
  35. TERCONAZOLE [Concomitant]
     Active Substance: TERCONAZOLE
  36. TRAZODONE [Concomitant]
     Active Substance: TRAZODONE HYDROCHLORIDE
  37. VALTREX [Concomitant]
     Active Substance: VALACYCLOVIR HYDROCHLORIDE
  38. HUMALOG KWIKPEN [Concomitant]
     Active Substance: INSULIN LISPRO
  39. LANTUS SOLOSTAR [Concomitant]
     Active Substance: INSULIN GLARGINE
  40. SSRI LEXAPRO [Concomitant]
  41. ACETAMINOPHEN [Concomitant]
     Active Substance: ACETAMINOPHEN
  42. AMOXICILLIN\CLAVULANIC ACID [Concomitant]
     Active Substance: AMOXICILLIN\CLAVULANIC ACID
  43. CIMETIDINE OTC [Concomitant]
  44. VICTOZA SUBCUTANEOUS SOLUTION [Concomitant]
  45. ROSUVASTATIN [Concomitant]
     Active Substance: ROSUVASTATIN
  46. NAPROXEN [Concomitant]
     Active Substance: NAPROXEN
  47. SUSTIVA [Concomitant]
     Active Substance: EFAVIRENZ
  48. BENZONATATE [Concomitant]
     Active Substance: BENZONATATE
  49. CEPHALEXIN [Concomitant]
     Active Substance: CEPHALEXIN
  50. VITAMIN D3 [Concomitant]
     Active Substance: CHOLECALCIFEROL
  51. MECLIZINE [Concomitant]
     Active Substance: MECLIZINE HYDROCHLORIDE
  52. SULFAMETH [Concomitant]
  53. MUPIROCIN [Concomitant]
     Active Substance: MUPIROCIN
  54. BETAMETHASONE DIPROPIONATE\CLOTRIMAZOLE [Concomitant]
     Active Substance: BETAMETHASONE DIPROPIONATE\CLOTRIMAZOLE
  55. DOCUSATE SODIUM [Concomitant]
     Active Substance: DOCUSATE SODIUM
  56. FLUCONAZOLE [Concomitant]
     Active Substance: FLUCONAZOLE
  57. VIBRAMYCIN [Concomitant]
     Active Substance: DOXYCYCLINE
  58. VICTOZA [Concomitant]
     Active Substance: LIRAGLUTIDE
  59. METFORMIN [Concomitant]
     Active Substance: METFORMIN HYDROCHLORIDE
     Dosage: UNK
     Route: 065
     Dates: start: 1995, end: 20200711
  60. HYDROXYZINE [Concomitant]
     Active Substance: HYDROXYZINE HYDROCHLORIDE
  61. LYRICA [Concomitant]
     Active Substance: PREGABALIN
  62. METANX [Concomitant]
     Active Substance: LEVOMEFOLATE CALCIUM\METHYLCOBALAMIN\PYRIDOXAL PHOSPHATE ANHYDROUS
  63. NORCO [Concomitant]
     Active Substance: ACETAMINOPHEN\HYDROCODONE BITARTRATE
  64. INSULIN NOS [Concomitant]
     Active Substance: INSULIN NOS
  65. METOPROLOL TARTRATE [Concomitant]
     Active Substance: METOPROLOL TARTRATE
  66. ZANTAC [Concomitant]
     Active Substance: RANITIDINE HYDROCHLORIDE
  67. ISOSORBIDE MONONITRATE [Concomitant]
     Active Substance: ISOSORBIDE MONONITRATE
  68. NITROGLYCERIN [Concomitant]
     Active Substance: NITROGLYCERIN

REACTIONS (8)
  - Renal failure [Fatal]
  - Chronic kidney disease [Not Recovered/Not Resolved]
  - Osteoporosis [Unknown]
  - Cardiac failure congestive [Unknown]
  - End stage renal disease [Not Recovered/Not Resolved]
  - Bone density decreased [Unknown]
  - Anxiety [Unknown]
  - Depression [Unknown]

NARRATIVE: CASE EVENT DATE: 20190401
